FAERS Safety Report 5081821-1 (Version None)
Quarter: 2006Q3

REPORT INFORMATION
  Report Type: 
  Country: None (occurrence: None)
  Receive Date: 20060816
  Receipt Date: 20060811
  Transmission Date: 20061208
  Serious: Yes (Hospitalization, Other)
  Sender: FDA-Public Use
  Company Number: GB-GLAXOSMITHKLINE-B0434284A

PATIENT
  Sex: Female

DRUGS (5)
  1. DIGOXIN [Suspect]
     Route: 048
  2. SPIRONOLACTONE [Suspect]
     Dosage: 25MG PER DAY
     Route: 048
  3. GABAPENTIN [Suspect]
     Dosage: 200MG THREE TIMES PER DAY
     Route: 048
  4. CETIRIZINE [Concomitant]
     Dosage: 10MG PER DAY
     Route: 048
  5. FUROSEMIDE [Concomitant]
     Dosage: 80MG TWICE PER DAY
     Route: 048

REACTIONS (4)
  - BLOOD ELECTROLYTES ABNORMAL [None]
  - BLOOD UREA ABNORMAL [None]
  - CONFUSIONAL STATE [None]
  - THERAPEUTIC AGENT TOXICITY [None]
